FAERS Safety Report 6598032-0 (Version None)
Quarter: 2010Q1

REPORT INFORMATION
  Report Type: 
  Country: None (occurrence: None)
  Receive Date: 20100216
  Receipt Date: 20100129
  Transmission Date: 20100710
  Serious: Yes (Congenital Anomaly)
  Sender: FDA-Public Use
  Company Number: 2010AL000724

PATIENT
  Sex: Female

DRUGS (7)
  1. RANITIDINE [Suspect]
     Dosage: TRPL
     Route: 064
  2. PERMETHRIN [Suspect]
  3. FERROUS SULFATE ELIXIR (ALPHARMA) [Suspect]
     Dosage: TRPL
     Route: 064
  4. AMOXICILLIN [Concomitant]
  5. BECLOMETHASONE DIPROPIONATE [Concomitant]
  6. VIRUS INFLUENZA [Concomitant]
  7. SALBUTAMOL [Concomitant]

REACTIONS (4)
  - CAESAREAN SECTION [None]
  - COMPLICATION OF PREGNANCY [None]
  - MATERNAL DRUGS AFFECTING FOETUS [None]
  - TALIPES [None]
